FAERS Safety Report 14236947 (Version 2)
Quarter: 2018Q1

REPORT INFORMATION
  Report Type: Spontaneous
  Country: US (occurrence: US)
  Receive Date: 20171129
  Receipt Date: 20180208
  Transmission Date: 20180508
  Serious: No
  Sender: FDA-Public Use
  Company Number: US-JNJFOC-20171105890

PATIENT
  Age: 85 Year
  Sex: Female
  Weight: 67.59 kg

DRUGS (2)
  1. TYLENOL REGULAR STRENGTH [Suspect]
     Active Substance: ACETAMINOPHEN
     Indication: PAIN
     Dosage: 325 MG
     Route: 048
  2. TYLENOL REGULAR STRENGTH [Suspect]
     Active Substance: ACETAMINOPHEN
     Indication: HEADACHE
     Dosage: 325 MG
     Route: 048

REACTIONS (4)
  - Off label use [Unknown]
  - Product container issue [Unknown]
  - Incorrect dose administered [Unknown]
  - Product label issue [Unknown]
